FAERS Safety Report 19514236 (Version 1)
Quarter: 2021Q3

REPORT INFORMATION
  Report Type: Spontaneous
  Country: US (occurrence: US)
  Receive Date: 20210709
  Receipt Date: 20210709
  Transmission Date: 20211014
  Serious: Yes (Other)
  Sender: FDA-Public Use
  Company Number: US-GLAXOSMITHKLINE-US2021GSK143686

PATIENT
  Sex: Male

DRUGS (8)
  1. ZANTAC [Suspect]
     Active Substance: RANITIDINE HYDROCHLORIDE
     Indication: DYSPEPSIA
     Dosage: 75 MG OVER THE COUNTER, DAILY USE 1/2007 ? 4/2010: USED IN CONJUNCTION WITH RX RANITIDINE 4/2010 ? 4
     Route: 065
     Dates: start: 200701, end: 201712
  2. ZANTAC [Suspect]
     Active Substance: RANITIDINE HYDROCHLORIDE
     Dosage: 150 MG, QD, DAILY USE 1/2007 ? 4/2010: USED IN CONJUNCTION WITH RX RANITIDINE 4/2010 ? 4/2011; DAILY
     Route: 065
     Dates: start: 200701, end: 201712
  3. RANITIDINE. [Suspect]
     Active Substance: RANITIDINE
     Indication: DYSPEPSIA
     Dosage: 150 MG, QD
     Route: 065
     Dates: start: 201004, end: 201104
  4. RANITIDINE CAPSULE [Suspect]
     Active Substance: RANITIDINE
     Indication: DYSPEPSIA
     Dosage: 75 MG OVER THE COUNTER, DAILY USE 1/2007 ? 4/2010: USED IN CONJUNCTION WITH RX RANITIDINE 4/2010 ? 4
     Route: 065
     Dates: start: 200701, end: 201712
  5. RANITIDINE CAPSULE [Suspect]
     Active Substance: RANITIDINE
     Dosage: 150 MG, QD, DAILY USE 1/2007 ? 4/2010: USED IN CONJUNCTION WITH RX RANITIDINE 4/2010 ? 4/2011; DAILY
     Route: 065
     Dates: start: 200701, end: 201712
  6. RANITIDINE. [Suspect]
     Active Substance: RANITIDINE
     Dosage: UNK
  7. RANITIDINE. [Suspect]
     Active Substance: RANITIDINE
     Dosage: UNK
  8. RANITIDINE. [Suspect]
     Active Substance: RANITIDINE
     Indication: DYSPEPSIA
     Dosage: 150 MG, QD
     Route: 065
     Dates: start: 201004, end: 201104

REACTIONS (1)
  - Bladder cancer [Unknown]
